FAERS Safety Report 10234906 (Version 1)
Quarter: 2014Q2

REPORT INFORMATION
  Report Type: Spontaneous
  Country: US (occurrence: US)
  Receive Date: 20140613
  Receipt Date: 20140613
  Transmission Date: 20141212
  Serious: Yes (Hospitalization)
  Sender: FDA-Public Use
  Company Number: US-BEH-2014043002

PATIENT
  Age: 44 Year
  Sex: Female

DRUGS (5)
  1. HIZENTRA [Suspect]
     Route: 058
     Dates: start: 20140522
  2. HIZENTRA [Suspect]
     Indication: HYPOGAMMAGLOBULINAEMIA
     Route: 058
     Dates: start: 20140529
  3. RIFAMPIN [Concomitant]
  4. CLARITHROMYCIN [Concomitant]
  5. AUGMENTIN [Concomitant]

REACTIONS (3)
  - Immune thrombocytopenic purpura [Unknown]
  - Haemorrhage [Unknown]
  - Platelet count decreased [Unknown]
